FAERS Safety Report 4632270-9 (Version None)
Quarter: 2005Q2

REPORT INFORMATION
  Report Type: 
  Country: None (occurrence: None)
  Receive Date: 20050411
  Receipt Date: 20050330
  Transmission Date: 20051028
  Serious: Yes (Hospitalization)
  Sender: FDA-Public Use
  Company Number: US-ROCHE-400180

PATIENT
  Age: 66 Year
  Sex: Female

DRUGS (11)
  1. CAPECITABINE [Suspect]
     Indication: METASTATIC RENAL CELL CARCINOMA
     Dosage: ON DAYS ONE THROUGH TWENTY-ONE
     Route: 048
     Dates: start: 20041029
  2. GEMCITABINE [Suspect]
     Indication: METASTATIC RENAL CELL CARCINOMA
     Dosage: ON DAYS ONE, EIGHT AND FIFTEEN
     Route: 042
     Dates: start: 20041029
  3. NORVASC [Concomitant]
  4. SYNTHROID [Concomitant]
  5. EVISTA [Concomitant]
  6. ZOCOR [Concomitant]
  7. PLAVIX [Concomitant]
  8. ASPIRIN [Concomitant]
  9. ARANESP [Concomitant]
  10. LOMOTIL [Concomitant]
     Indication: DIARRHOEA
  11. IMODIUM [Concomitant]
     Indication: DIARRHOEA

REACTIONS (10)
  - APHAGIA [None]
  - AZOTAEMIA [None]
  - DEHYDRATION [None]
  - DIARRHOEA [None]
  - HYPOKALAEMIA [None]
  - HYPOVOLAEMIC SHOCK [None]
  - MUCOSAL INFLAMMATION [None]
  - RENAL FAILURE ACUTE [None]
  - STOMATITIS [None]
  - VOMITING [None]
